FAERS Safety Report 14215889 (Version 3)
Quarter: 2019Q3

REPORT INFORMATION
  Report Type: Report from Study
  Country: DE (occurrence: DE)
  Receive Date: 20171122
  Receipt Date: 20190822
  Transmission Date: 20191004
  Serious: Yes (Hospitalization)
  Sender: FDA-Public Use
  Company Number: PHHY2017DE137956

PATIENT
  Sex: Male
  Weight: 128 kg

DRUGS (14)
  1. COSENTYX [Suspect]
     Active Substance: SECUKINUMAB
     Dosage: 150 MG, PER APPLICATION (ONCE)
     Route: 065
     Dates: start: 20170807
  2. COSENTYX [Suspect]
     Active Substance: SECUKINUMAB
     Dosage: 150 MG, PER APPLICATION (ONCE)
     Route: 065
     Dates: start: 20170821
  3. CELECOXIB. [Concomitant]
     Active Substance: CELECOXIB
     Indication: ANKYLOSING SPONDYLITIS
     Dosage: 1 DF (400 MG), BID (1-0-1)
     Route: 048
     Dates: start: 20170613, end: 20170909
  4. ASPIRIN. [Concomitant]
     Active Substance: ASPIRIN
     Indication: ANKYLOSING SPONDYLITIS
     Dosage: 500 MG, PRN
     Route: 048
     Dates: start: 2015, end: 20170714
  5. COSENTYX [Suspect]
     Active Substance: SECUKINUMAB
     Dosage: 150 MG, PER APPLICATION (ONCE)
     Route: 065
     Dates: end: 20170828
  6. COSENTYX [Suspect]
     Active Substance: SECUKINUMAB
     Indication: ANKYLOSING SPONDYLITIS
     Dosage: 150 MG, PER APPLICATION (ONCE)
     Route: 065
     Dates: start: 20170731, end: 20170731
  7. CHOLECALCIFEROL [Concomitant]
     Active Substance: CHOLECALCIFEROL
     Indication: VITAMIN D DEFICIENCY
     Dosage: 1000 IU, QD
     Route: 048
     Dates: start: 20170613
  8. ATORVASTATIN [Concomitant]
     Active Substance: ATORVASTATIN
     Indication: HYPERCHOLESTEROLAEMIA
     Dosage: 10 MG, QD
     Route: 048
     Dates: start: 201307
  9. RAMIPRIL. [Concomitant]
     Active Substance: RAMIPRIL
     Indication: HYPERTENSION
     Dosage: 10 MG, QD
     Route: 048
     Dates: start: 20130701
  10. NOVALGIN [Concomitant]
     Indication: ANKYLOSING SPONDYLITIS
     Dosage: 500 MG, QID (2-2-2-2)
     Route: 048
     Dates: start: 20170613
  11. TRAZODONE [Concomitant]
     Active Substance: TRAZODONE HYDROCHLORIDE
     Indication: DEPRESSION
     Dosage: 100 MG, QD
     Route: 048
     Dates: start: 20151101
  12. ESOMEPRAZOLE. [Concomitant]
     Active Substance: ESOMEPRAZOLE MAGNESIUM
     Indication: GASTROOESOPHAGEAL REFLUX PROPHYLAXIS
     Dosage: 40 MG, QD
     Route: 048
     Dates: start: 20170601
  13. COSENTYX [Suspect]
     Active Substance: SECUKINUMAB
     Dosage: 150 MG, PER APPLICATION (ONCE)
     Route: 065
     Dates: start: 20170817
  14. ESCITALOPRAM [Concomitant]
     Active Substance: ESCITALOPRAM OXALATE
     Indication: DEPRESSION
     Dosage: 5 MG, QD, 1-0-0
     Route: 048
     Dates: start: 20151101

REACTIONS (20)
  - Alanine aminotransferase increased [Unknown]
  - Pancreatic disorder [Unknown]
  - Cholelithiasis [Unknown]
  - Blood bilirubin increased [Unknown]
  - Blood alkaline phosphatase increased [Unknown]
  - Pancreatic fibrosis [Unknown]
  - Chronic gastritis [Unknown]
  - Metastases to nervous system [Unknown]
  - Gastric polyps [Unknown]
  - Portal vein occlusion [Unknown]
  - Aspartate aminotransferase increased [Unknown]
  - Cholestasis [Unknown]
  - Mesenteric venous occlusion [Unknown]
  - Gastrointestinal stromal tumour [Unknown]
  - Ductal adenocarcinoma of pancreas [Recovered/Resolved]
  - Gamma-glutamyltransferase increased [Unknown]
  - Abdominal wall haematoma [Unknown]
  - Jaundice [Unknown]
  - Connective tissue disorder [Unknown]
  - Metastases to liver [Unknown]

NARRATIVE: CASE EVENT DATE: 201709
